FAERS Safety Report 5998196-3 (Version None)
Quarter: 2008Q4

REPORT INFORMATION
  Report Type: 
  Country: None (occurrence: None)
  Receive Date: 20081213
  Receipt Date: 20080624
  Transmission Date: 20090506
  Serious: No
  Sender: FDA-Public Use
  Company Number: US-AMGEN-KDL289932

PATIENT
  Sex: Male

DRUGS (2)
  1. ENBREL [Suspect]
     Indication: JUVENILE ARTHRITIS
     Route: 058
     Dates: start: 20080609
  2. METHOTREXATE [Concomitant]
     Dates: start: 20080609

REACTIONS (2)
  - EYE SWELLING [None]
  - OCULAR HYPERAEMIA [None]
